FAERS Safety Report 5386260-1 (Version None)
Quarter: 2007Q3

REPORT INFORMATION
  Report Type: 
  Country: None (occurrence: None)
  Receive Date: 20070710
  Receipt Date: 20070710
  Transmission Date: 20080115
  Serious: No
  Sender: FDA-Public Use
  Company Number: None

PATIENT
  Age: 70 Year
  Sex: Female
  Weight: 63.9572 kg

DRUGS (3)
  1. ESTROPIPATE [Suspect]
     Indication: CRYING
     Dosage: 8 TABLETS DAILY PO
     Route: 048
     Dates: start: 20070510, end: 20070610
  2. ESTROPIPATE [Suspect]
     Indication: ELECTROCARDIOGRAM ABNORMAL
     Dosage: 8 TABLETS DAILY PO
     Route: 048
     Dates: start: 20070510, end: 20070610
  3. ESTROPIPATE [Suspect]
     Indication: HOT FLUSH
     Dosage: 8 TABLETS DAILY PO
     Route: 048
     Dates: start: 20070510, end: 20070610

REACTIONS (3)
  - CARDIAC DISORDER [None]
  - DRUG EFFECT DECREASED [None]
  - PHARMACEUTICAL PRODUCT COMPLAINT [None]
